FAERS Safety Report 8265946-5 (Version None)
Quarter: 2012Q2

REPORT INFORMATION
  Report Type: 
  Country: None (occurrence: None)
  Receive Date: 20120406
  Receipt Date: 20120326
  Transmission Date: 20120825
  Serious: Yes (Hospitalization, Disabling, Other)
  Sender: FDA-Public Use
  Company Number: US-MERCK-1201USA04018

PATIENT
  Age: 47 Year
  Sex: Female
  Weight: 60 kg

DRUGS (7)
  1. FOSAMAX [Suspect]
     Route: 048
     Dates: start: 20010401, end: 20030101
  2. FOSAMAX [Suspect]
     Indication: OSTEOPENIA
     Route: 048
     Dates: start: 19950101, end: 20010401
  3. ACTONEL [Suspect]
     Indication: OSTEOPENIA
     Route: 048
     Dates: start: 20030501, end: 20090101
  4. FOSAMAX [Suspect]
     Indication: OSTEOPOROSIS
     Route: 048
     Dates: start: 19950101, end: 20010401
  5. ACTONEL [Suspect]
     Indication: OSTEOPOROSIS
     Route: 048
     Dates: start: 20030501, end: 20090101
  6. CALCIUM (UNSPECIFIED) AND MAGNESIUM (UNSPECIFIED) [Concomitant]
     Route: 065
     Dates: start: 19950101
  7. FOSAMAX [Suspect]
     Route: 048
     Dates: start: 20010401, end: 20030101

REACTIONS (50)
  - GASTROOESOPHAGEAL REFLUX DISEASE [None]
  - OTITIS EXTERNA [None]
  - CLAVICLE FRACTURE [None]
  - ALANINE AMINOTRANSFERASE INCREASED [None]
  - BLOOD UREA INCREASED [None]
  - FOREIGN BODY [None]
  - RECTAL HAEMORRHAGE [None]
  - PAIN IN EXTREMITY [None]
  - ASPARTATE AMINOTRANSFERASE INCREASED [None]
  - HAEMORRHOIDAL HAEMORRHAGE [None]
  - FRACTURE NONUNION [None]
  - RIB FRACTURE [None]
  - LIVER FUNCTION TEST ABNORMAL [None]
  - DEPRESSION [None]
  - BLOOD BILIRUBIN INCREASED [None]
  - HEADACHE [None]
  - GLOSSITIS [None]
  - ARTHRALGIA [None]
  - OSTEOARTHRITIS [None]
  - SKIN PAPILLOMA [None]
  - LYMPHADENITIS [None]
  - OSTEOMYELITIS CHRONIC [None]
  - ANAEMIA [None]
  - INTERVERTEBRAL DISC DEGENERATION [None]
  - VITAMIN D DEFICIENCY [None]
  - THROMBOPHLEBITIS [None]
  - STOMATITIS [None]
  - LYMPHOEDEMA [None]
  - BUNDLE BRANCH BLOCK LEFT [None]
  - RADIUS FRACTURE [None]
  - OSTEOMALACIA [None]
  - FALL [None]
  - MUSCLE STRAIN [None]
  - HAEMARTHROSIS [None]
  - DYSPEPSIA [None]
  - CELLULITIS [None]
  - DEVICE RELATED INFECTION [None]
  - FRACTURED COCCYX [None]
  - OPEN WOUND [None]
  - VERTIGO [None]
  - LOW TURNOVER OSTEOPATHY [None]
  - INSOMNIA [None]
  - HIATUS HERNIA [None]
  - FEMUR FRACTURE [None]
  - ARTHRITIS [None]
  - TENDON INJURY [None]
  - STRESS FRACTURE [None]
  - ROTATOR CUFF SYNDROME [None]
  - CALCIUM DEFICIENCY [None]
  - CARTILAGE INJURY [None]
